FAERS Safety Report 17828644 (Version 1)
Quarter: 2020Q2

REPORT INFORMATION
  Report Type: Spontaneous
  Country: US (occurrence: US)
  Receive Date: 20200527
  Receipt Date: 20200527
  Transmission Date: 20200714
  Serious: Yes (Hospitalization, Other)
  Sender: FDA-Public Use
  Company Number: US-MYLANLABS-2020M1051429

PATIENT
  Age: 6 Decade
  Sex: Male

DRUGS (3)
  1. IFOSFAMIDE. [Suspect]
     Active Substance: IFOSFAMIDE
     Indication: CHONDROSARCOMA
     Dosage: HIGH-DOSE
     Route: 065
  2. MESNA. [Suspect]
     Active Substance: MESNA
     Indication: CHONDROSARCOMA
     Route: 065
  3. PAZOPANIB [Suspect]
     Active Substance: PAZOPANIB
     Indication: CHONDROSARCOMA
     Dosage: UNK 1 DAY
     Route: 065

REACTIONS (4)
  - Ventricular hypokinesia [Recovered/Resolved]
  - Renal impairment [Unknown]
  - Coronary artery stenosis [Recovered/Resolved]
  - Ejection fraction decreased [Recovered/Resolved]
